FAERS Safety Report 24690250 (Version 1)
Quarter: 2024Q4

REPORT INFORMATION
  Report Type: Spontaneous
  Country: US (occurrence: US)
  Receive Date: 20241203
  Receipt Date: 20241203
  Transmission Date: 20250115
  Serious: No
  Sender: SANOFI AVENTIS
  Company Number: US-SA-2024SA352281

PATIENT
  Age: 51 Year
  Sex: Female
  Weight: 79.09 kg

DRUGS (5)
  1. AUBAGIO [Suspect]
     Active Substance: TERIFLUNOMIDE
     Indication: Multiple sclerosis
     Dosage: 14 MG, QD
     Route: 048
     Dates: start: 20220620
  2. METHYLPREDNISOLONE [Concomitant]
     Active Substance: METHYLPREDNISOLONE
     Dosage: UNK
  3. ENALAPRILAT [Concomitant]
     Active Substance: ENALAPRILAT
     Dosage: UNK
  4. ZANAFLEX [Concomitant]
     Active Substance: TIZANIDINE HYDROCHLORIDE
     Dosage: UNK
  5. ORPHENADRINE [Concomitant]
     Active Substance: ORPHENADRINE
     Dosage: UNK

REACTIONS (2)
  - Tendon operation [Unknown]
  - Influenza [Unknown]

NARRATIVE: CASE EVENT DATE: 20240501
